FAERS Safety Report 21975510 (Version 2)
Quarter: 2025Q3

REPORT INFORMATION
  Report Type: Spontaneous
  Country: EU (occurrence: EU)
  Receive Date: 20230210
  Receipt Date: 20250729
  Transmission Date: 20251021
  Serious: Yes (Hospitalization, Other)
  Sender: AUROBINDO
  Company Number: EU-Accord-298060

PATIENT
  Age: 73 Year
  Sex: Male

DRUGS (2)
  1. TRANEXAMIC ACID [Suspect]
     Active Substance: TRANEXAMIC ACID
     Indication: Product used for unknown indication
     Route: 037
  2. NOREPINEPHRINE [Concomitant]
     Active Substance: NOREPINEPHRINE
     Indication: Product used for unknown indication
     Route: 065

REACTIONS (15)
  - Renal impairment [Recovered/Resolved]
  - Epilepsy [Recovered/Resolved]
  - Hypoxia [Unknown]
  - Muscular weakness [Recovered/Resolved]
  - Dysarthria [Recovered/Resolved]
  - Metabolic acidosis [Recovered/Resolved]
  - Hypertension [Recovered/Resolved]
  - Leukocytosis [Recovered/Resolved]
  - Pain in extremity [Recovered/Resolved]
  - Perineal pain [Recovered/Resolved]
  - Haemodynamic instability [Recovered/Resolved]
  - Pyrexia [Recovered/Resolved]
  - Myoclonus [Recovered/Resolved]
  - Urine output decreased [Recovered/Resolved]
  - Accidental exposure to product [Unknown]
